FAERS Safety Report 7031849-7 (Version None)
Quarter: 2010Q4

REPORT INFORMATION
  Report Type: 
  Country: None (occurrence: None)
  Receive Date: 20101007
  Receipt Date: 20100928
  Transmission Date: 20110411
  Serious: No
  Sender: FDA-Public Use
  Company Number: US-BIOGENIDEC-2010BI034212

PATIENT
  Age: 52 Year
  Sex: Female

DRUGS (1)
  1. TYSABRI [Suspect]
     Indication: MULTIPLE SCLEROSIS
     Route: 042
     Dates: start: 20080425, end: 20100501

REACTIONS (5)
  - ANGER [None]
  - DEPRESSION [None]
  - GAIT DISTURBANCE [None]
  - IRRITABILITY [None]
  - SENSATION OF HEAVINESS [None]
